FAERS Safety Report 18276578 (Version 2)
Quarter: 2020Q4

REPORT INFORMATION
  Report Type: Spontaneous
  Country: US (occurrence: US)
  Receive Date: 20200917
  Receipt Date: 20201019
  Transmission Date: 20210113
  Serious: No
  Sender: FDA-Public Use
  Company Number: US-BIOGEN-2020BI00924245

PATIENT
  Sex: Female

DRUGS (1)
  1. TECFIDERA [Suspect]
     Active Substance: DIMETHYL FUMARATE
     Indication: MULTIPLE SCLEROSIS
     Route: 065
     Dates: start: 20200306

REACTIONS (5)
  - Bone disorder [Not Recovered/Not Resolved]
  - Altered visual depth perception [Unknown]
  - Fall [Recovered/Resolved]
  - Sleep disorder [Unknown]
  - Bone pain [Not Recovered/Not Resolved]
